FAERS Safety Report 5138248-3 (Version None)
Quarter: 2006Q4

REPORT INFORMATION
  Report Type: 
  Country: None (occurrence: None)
  Receive Date: 20061030
  Receipt Date: 20060803
  Transmission Date: 20070319
  Serious: No
  Sender: FDA-Public Use
  Company Number: US-GLAXOSMITHKLINE-A0615069A

PATIENT

DRUGS (7)
  1. ADVAIR HFA [Suspect]
     Indication: ASTHMA
     Route: 055
     Dates: start: 20040101
  2. COMBIVENT [Concomitant]
  3. DIGITEK [Concomitant]
  4. AVANDIA [Concomitant]
  5. K-DUR 10 [Concomitant]
  6. LASIX [Concomitant]
  7. ZOCOR [Concomitant]

REACTIONS (1)
  - IMPAIRED HEALING [None]
